FAERS Safety Report 10383892 (Version 1)
Quarter: 2014Q3

REPORT INFORMATION
  Report Type: Spontaneous
  Country: BE (occurrence: BE)
  Receive Date: 20140814
  Receipt Date: 20140814
  Transmission Date: 20150326
  Serious: Yes (Other)
  Sender: FDA-Public Use
  Company Number: BE-ROCHE-1449670

PATIENT
  Age: 93 Year
  Sex: Female

DRUGS (1)
  1. LUCENTIS [Suspect]
     Active Substance: RANIBIZUMAB
     Indication: AGE-RELATED MACULAR DEGENERATION
     Route: 050

REACTIONS (8)
  - Vitritis [Recovering/Resolving]
  - Deposit eye [Not Recovered/Not Resolved]
  - Foreign body in eye [Recovering/Resolving]
  - Ocular hyperaemia [Unknown]
  - Maculopathy [Unknown]
  - Anterior chamber cell [Recovering/Resolving]
  - Vision blurred [Not Recovered/Not Resolved]
  - Visual acuity reduced [Not Recovered/Not Resolved]
